FAERS Safety Report 7576908-5 (Version None)
Quarter: 2011Q2

REPORT INFORMATION
  Report Type: 
  Country: None (occurrence: None)
  Receive Date: 20110624
  Receipt Date: 20110624
  Transmission Date: 20111010
  Serious: Yes (Other)
  Sender: FDA-Public Use
  Company Number: None

PATIENT
  Sex: Female
  Weight: 64.4108 kg

DRUGS (1)
  1. EFFEXOR XR [Suspect]
     Indication: DEPRESSION
     Dosage: ONE CAPSULE ONE TIME DAILY PO
     Route: 048
     Dates: start: 20100501, end: 20110619

REACTIONS (12)
  - ANGER [None]
  - VOMITING [None]
  - FEELING OF BODY TEMPERATURE CHANGE [None]
  - CONDITION AGGRAVATED [None]
  - TIC [None]
  - DEPRESSION [None]
  - TREMOR [None]
  - DRUG INEFFECTIVE [None]
  - NAUSEA [None]
  - DRUG DEPENDENCE [None]
  - DRUG WITHDRAWAL SYNDROME [None]
  - PARAESTHESIA [None]
